FAERS Safety Report 9213260 (Version 1)
Quarter: 2013Q1

REPORT INFORMATION
  Report Type: Spontaneous
  Country: US (occurrence: None)
  Receive Date: 20120820
  Receipt Date: 20120820
  Transmission Date: 20140127
  Serious: No
  Sender: FDA-Public Use
  Company Number: 1000031230

PATIENT
  Age: 63 Year
  Sex: Female

DRUGS (2)
  1. VIIBRYD (VILAZODONE) TABLETS) [Suspect]
     Indication: DEPRESSION
     Dosage: 5 MG (5 MG, 1 IN 1 D), ORAL
     Route: 048
     Dates: start: 20120405, end: 20120411
  2. VIIBRYD [Suspect]
     Dosage: 20 MG (20 MG, 1 IN 1 D)
     Route: 048
     Dates: start: 20120426, end: 201204

REACTIONS (1)
  - Hallucination, auditory [None]
